FAERS Safety Report 10029669 (Version 1)
Quarter: 2014Q1

REPORT INFORMATION
  Report Type: Spontaneous
  Country: US (occurrence: None)
  Receive Date: 20140321
  Receipt Date: 20140321
  Transmission Date: 20141002
  Serious: No
  Sender: FDA-Public Use
  Company Number: None

PATIENT
  Age: 65 Year
  Sex: Female
  Weight: 83.92 kg

DRUGS (3)
  1. ATORVASTATIN [Suspect]
     Indication: HYPERCHOLESTEROLAEMIA
     Route: 048
     Dates: start: 20140221, end: 20140317
  2. LOSARTAN [Concomitant]
  3. CHOLESTYRAMINE [Concomitant]

REACTIONS (3)
  - Pruritus generalised [None]
  - Rash [None]
  - Insomnia [None]
